FAERS Safety Report 26092742 (Version 1)
Quarter: 2025Q4

REPORT INFORMATION
  Report Type: Spontaneous
  Country: US (occurrence: US)
  Receive Date: 20251126
  Receipt Date: 20251126
  Transmission Date: 20260117
  Serious: Yes (Hospitalization, Other)
  Sender: NOVO NORDISK
  Company Number: US-NOVOPROD-1569407

PATIENT
  Age: 69 Year
  Sex: Female

DRUGS (2)
  1. WEGOVY [Suspect]
     Active Substance: SEMAGLUTIDE
     Indication: Hypotension
     Dosage: UNK (RESTARTED)
     Route: 058
     Dates: start: 2025, end: 20251117
  2. WEGOVY [Suspect]
     Active Substance: SEMAGLUTIDE
     Indication: Weight control
     Dosage: UNK

REACTIONS (3)
  - Foot deformity [Unknown]
  - Allodynia [Not Recovered/Not Resolved]
  - Spinal disorder [Unknown]

NARRATIVE: CASE EVENT DATE: 20240901
